FAERS Safety Report 20011066 (Version 2)
Quarter: 2023Q2

REPORT INFORMATION
  Report Type: Spontaneous
  Country: GB (occurrence: GB)
  Receive Date: 20211028
  Receipt Date: 20230621
  Transmission Date: 20230721
  Serious: Yes (Other)
  Sender: FDA-Public Use
  Company Number: GB-LUNDBECK-DKLU3039945

PATIENT
  Age: 43 Year
  Sex: Female
  Weight: 74.38 kg

DRUGS (6)
  1. CITALOPRAM [Suspect]
     Active Substance: CITALOPRAM HYDROBROMIDE
     Indication: Depression
     Route: 048
     Dates: start: 20211012, end: 20211013
  2. ALBUTEROL [Concomitant]
     Active Substance: ALBUTEROL
     Indication: Product used for unknown indication
     Route: 065
  3. SYMBICORT [Concomitant]
     Active Substance: BUDESONIDE\FORMOTEROL FUMARATE DIHYDRATE
     Indication: Product used for unknown indication
     Route: 065
  4. VITAMIN B1 [Concomitant]
     Active Substance: THIAMINE HYDROCHLORIDE
     Indication: Product used for unknown indication
     Route: 065
  5. FISH OIL\OMEGA-3 FATTY ACIDS [Concomitant]
     Active Substance: FISH OIL\OMEGA-3 FATTY ACIDS
     Indication: Product used for unknown indication
     Route: 065
  6. COENZYME Q10 [Concomitant]
     Active Substance: DIETARY SUPPLEMENT\UBIDECARENONE
     Indication: Product used for unknown indication
     Route: 065

REACTIONS (11)
  - Chills [Recovered/Resolved]
  - Muscle twitching [Recovered/Resolved]
  - Dyspnoea [Not Recovered/Not Resolved]
  - Muscular weakness [Recovered/Resolved]
  - Cough [Not Recovered/Not Resolved]
  - Rash erythematous [Not Recovered/Not Resolved]
  - Dyskinesia [Recovered/Resolved]
  - Fatigue [Recovered/Resolved]
  - Dry mouth [Recovered/Resolved]
  - Dizziness [Unknown]
  - Aphasia [Unknown]

NARRATIVE: CASE EVENT DATE: 20211013
